FAERS Safety Report 4752705-0 (Version None)
Quarter: 2005Q3

REPORT INFORMATION
  Report Type: 
  Country: None (occurrence: None)
  Receive Date: 20050823
  Receipt Date: 20050819
  Transmission Date: 20060218
  Serious: Yes (Other)
  Sender: FDA-Public Use
  Company Number: DE-2005-006776

PATIENT
  Age: 43 Year
  Sex: Male

DRUGS (1)
  1. BETASERON [Suspect]
     Dosage: UNK, SUBCUTANEOUS
     Route: 058
     Dates: start: 20050101

REACTIONS (2)
  - DIABETES MELLITUS [None]
  - REFUSAL OF TREATMENT BY PATIENT [None]
